FAERS Safety Report 6648066-2 (Version None)
Quarter: 2010Q1

REPORT INFORMATION
  Report Type: 
  Country: None (occurrence: None)
  Receive Date: 20100324
  Receipt Date: 20100316
  Transmission Date: 20100710
  Serious: Yes (Other)
  Sender: FDA-Public Use
  Company Number: US-ASTRAZENECA-2009SE23893

PATIENT
  Age: 61 Year
  Sex: Female
  Weight: 69.9 kg

DRUGS (6)
  1. CRESTOR [Suspect]
     Indication: LIPIDS INCREASED
     Route: 048
     Dates: start: 20090101, end: 20091012
  2. CRESTOR [Suspect]
     Route: 048
  3. LEVOTHYROXINE SODIUM [Concomitant]
     Route: 048
     Dates: start: 20090801
  4. DOXAZOSIN [Concomitant]
     Route: 048
     Dates: start: 20080101
  5. LISINOPRIL [Concomitant]
     Route: 048
     Dates: start: 19800101
  6. ACTONEL [Concomitant]
     Route: 048
     Dates: start: 20070101

REACTIONS (1)
  - LIVER FUNCTION TEST ABNORMAL [None]
